FAERS Safety Report 9860492 (Version 2)
Quarter: 2014Q1

REPORT INFORMATION
  Report Type: Spontaneous
  Country: US (occurrence: US)
  Receive Date: 20140202
  Receipt Date: 20140316
  Transmission Date: 20141002
  Serious: No
  Sender: FDA-Public Use
  Company Number: US-009507513-1402USA000047

PATIENT
  Sex: Female
  Weight: 63.49 kg

DRUGS (3)
  1. MIRALAX [Suspect]
     Indication: PRODUCT USED FOR UNKNOWN INDICATION
     Dosage: 17 G, QD
     Route: 048
     Dates: start: 2010, end: 2014
  2. MIRALAX [Suspect]
     Dosage: UNK, UNKNOWN
     Route: 048
  3. MIRALAX [Suspect]
     Dosage: UNK, UNKNOWN
     Route: 048

REACTIONS (4)
  - Abdominal pain upper [Unknown]
  - Abdominal pain [Unknown]
  - Abdominal distension [Unknown]
  - Incorrect drug administration duration [Unknown]
